FAERS Safety Report 11291080 (Version 1)
Quarter: 2015Q3

REPORT INFORMATION
  Report Type: Spontaneous
  Country: US (occurrence: None)
  Receive Date: 20150720
  Receipt Date: 20150720
  Transmission Date: 20151125
  Serious: Yes (Life-Threatening)
  Sender: FDA-Public Use
  Company Number: None

PATIENT
  Age: 69 Year
  Sex: Male

DRUGS (4)
  1. LISINOPRIL. [Suspect]
     Active Substance: LISINOPRIL
     Indication: HYPERTENSION
     Route: 048
     Dates: start: 20120221, end: 20120511
  2. LISINOPRIL. [Suspect]
     Active Substance: LISINOPRIL
     Indication: EXOSTOSIS
     Route: 048
     Dates: start: 20120221, end: 20120511
  3. LISINOPRIL. [Suspect]
     Active Substance: LISINOPRIL
     Indication: ECZEMA
     Route: 048
     Dates: start: 20120221, end: 20120511
  4. LISINOPRIL. [Suspect]
     Active Substance: LISINOPRIL
     Indication: GASTROOESOPHAGEAL REFLUX DISEASE
     Route: 048
     Dates: start: 20120221, end: 20120511

REACTIONS (1)
  - Angioedema [None]

NARRATIVE: CASE EVENT DATE: 20120511
